FAERS Safety Report 18325902 (Version 2)
Quarter: 2020Q4

REPORT INFORMATION
  Report Type: Spontaneous
  Country: US (occurrence: US)
  Receive Date: 20200929
  Receipt Date: 20201221
  Transmission Date: 20210113
  Serious: No
  Sender: FDA-Public Use
  Company Number: US-PFIZER INC-2020373428

PATIENT
  Age: 7 Decade
  Sex: Female
  Weight: 55.79 kg

DRUGS (1)
  1. LATANOPROST. [Suspect]
     Active Substance: LATANOPROST
     Indication: INTRAOCULAR PRESSURE INCREASED
     Dosage: 2 DROP, 1X/DAY (ONE DROP PER EYE AT NIGHT TIME)
     Route: 047

REACTIONS (5)
  - Abnormal sensation in eye [Unknown]
  - Eye irritation [Recovered/Resolved]
  - Foreign body sensation in eyes [Recovered/Resolved]
  - Vision blurred [Recovered/Resolved]
  - Drug ineffective [Not Recovered/Not Resolved]
